FAERS Safety Report 4787239-0 (Version None)
Quarter: 2005Q3

REPORT INFORMATION
  Report Type: 
  Country: None (occurrence: None)
  Receive Date: 20050927
  Receipt Date: 20050615
  Transmission Date: 20060218
  Serious: No
  Sender: FDA-Public Use
  Company Number: USA0506100696

PATIENT
  Age: 10 Year
  Sex: Male

DRUGS (1)
  1. STRATTERA [Suspect]
     Indication: ATTENTION DEFICIT/HYPERACTIVITY DISORDER
     Dosage: 25 MG DAY

REACTIONS (6)
  - ANOREXIA [None]
  - COMPULSIONS [None]
  - GRIMACING [None]
  - MUSCLE TWITCHING [None]
  - SOCIAL AVOIDANT BEHAVIOUR [None]
  - VOMITING [None]
